FAERS Safety Report 7940642-X (Version None)
Quarter: 2011Q4

REPORT INFORMATION
  Report Type: 
  Country: None (occurrence: None)
  Receive Date: 20111128
  Receipt Date: 20111114
  Transmission Date: 20120403
  Serious: Yes (Hospitalization)
  Sender: FDA-Public Use
  Company Number: ES-ELI_LILLY_AND_COMPANY-ES201111004455

PATIENT
  Sex: Female
  Weight: 65 kg

DRUGS (8)
  1. CALCIUM [Concomitant]
     Indication: SUPPLEMENTATION THERAPY
     Dosage: 1 DF, QD
     Route: 048
  2. IBUPROFEN [Concomitant]
     Indication: PAIN
     Dosage: 600 MG, PRN
     Route: 048
  3. FORTEO [Suspect]
     Indication: OSTEOPOROSIS
     Dosage: 20 UG, QD
     Route: 058
     Dates: start: 20110424
  4. CAPTOPRIL [Concomitant]
     Dosage: 50 MG, BID
     Route: 048
  5. ALENDRONATE SODIUM [Concomitant]
     Indication: OSTEOPOROSIS
     Dosage: 1 DF, MONTHLY (1/M)
     Route: 048
  6. OMEPRAZOLE [Concomitant]
     Indication: GASTRIC DISORDER
     Dosage: 20 MG, QD
     Route: 048
  7. CONDRO SAN [Concomitant]
     Indication: CHONDROPATHY
     Dosage: 400 MG, BID
     Route: 048
  8. ACETAMINOPHEN [Concomitant]
     Indication: PAIN
     Dosage: 1 G, BID
     Route: 048

REACTIONS (1)
  - SPINAL OPERATION [None]
